FAERS Safety Report 9777524 (Version 8)
Quarter: 2015Q4

REPORT INFORMATION
  Report Type: Spontaneous
  Country: DE (occurrence: DE)
  Receive Date: 20131222
  Receipt Date: 20151222
  Transmission Date: 20160305
  Serious: Yes (Hospitalization, Other)
  Sender: FDA-Public Use
  Company Number: PHHY2013DE146421

PATIENT
  Age: 73 Year
  Sex: Female

DRUGS (5)
  1. ESTRADOT [Suspect]
     Active Substance: ESTRADIOL
     Indication: RESTLESSNESS
     Dosage: 100 UG, QD
     Route: 062
  2. ESTRADOT [Suspect]
     Active Substance: ESTRADIOL
     Indication: HORMONE LEVEL ABNORMAL
     Dosage: 75 UG/24 HOURS, 1 PATCH EVERY 3-4 DAYS
     Route: 062
  3. ESTRADOT [Suspect]
     Active Substance: ESTRADIOL
     Dosage: 100 UG, QD
     Route: 062
  4. ESTRADOT [Suspect]
     Active Substance: ESTRADIOL
     Dosage: UNK (75 EVERY FIVE DAYS), UNK
     Route: 062
  5. ESTRADOT [Suspect]
     Active Substance: ESTRADIOL
     Dosage: 75 UG/24 HOURS, 1 PATCH EVERY 3-4 DAYS
     Route: 062

REACTIONS (23)
  - Hypertension [Not Recovered/Not Resolved]
  - Cardiovascular disorder [Unknown]
  - Application site erythema [Recovered/Resolved]
  - Drug ineffective [Not Recovered/Not Resolved]
  - Product use issue [Unknown]
  - Myocardial infarction [Unknown]
  - Stress [Not Recovered/Not Resolved]
  - Dizziness [Not Recovered/Not Resolved]
  - Mental disorder [Not Recovered/Not Resolved]
  - Cardiac disorder [Not Recovered/Not Resolved]
  - Nervousness [Not Recovered/Not Resolved]
  - Angina pectoris [Not Recovered/Not Resolved]
  - General physical health deterioration [Not Recovered/Not Resolved]
  - Abdominal discomfort [Unknown]
  - Tachycardia [Not Recovered/Not Resolved]
  - Restlessness [Not Recovered/Not Resolved]
  - Sleep disorder [Not Recovered/Not Resolved]
  - Feeling abnormal [Unknown]
  - Drug administered at inappropriate site [Not Recovered/Not Resolved]
  - Sedation [Unknown]
  - Nipple pain [Unknown]
  - Nausea [Not Recovered/Not Resolved]
  - Inappropriate schedule of drug administration [Unknown]
